FAERS Safety Report 6306057-5 (Version None)
Quarter: 2009Q3

REPORT INFORMATION
  Report Type: 
  Country: None (occurrence: None)
  Receive Date: 20090810
  Receipt Date: 20090810
  Transmission Date: 20100115
  Serious: Yes (Hospitalization)
  Sender: FDA-Public Use
  Company Number: None

PATIENT
  Age: 93 Year
  Sex: Female
  Weight: 80 kg

DRUGS (7)
  1. CLARITHROMYCIN [Suspect]
     Indication: CELLULITIS
     Dosage: 250 MG BID PO
     Route: 048
     Dates: start: 20090421, end: 20090425
  2. CLONIDINE [Concomitant]
  3. LISINOPRIL [Concomitant]
  4. ATORVASTATIN CALCIUM [Concomitant]
  5. SERTRALINE [Concomitant]
  6. HYDROCODONE BITARTRATE + ACETAMINOPHEN [Concomitant]
  7. WARFARIN [Concomitant]

REACTIONS (6)
  - BRADYCARDIA [None]
  - CELLULITIS [None]
  - DRUG INTERACTION [None]
  - HYPONATRAEMIA [None]
  - INTERNATIONAL NORMALISED RATIO INCREASED [None]
  - WEIGHT INCREASED [None]
